FAERS Safety Report 4577795-X (Version None)
Quarter: 2005Q1

REPORT INFORMATION
  Report Type: 
  Country: None (occurrence: None)
  Receive Date: 20050209
  Receipt Date: 20050127
  Transmission Date: 20050727
  Serious: Yes (Other)
  Sender: FDA-Public Use
  Company Number: 2005023608

PATIENT
  Age: 57 Year
  Sex: Female
  Weight: 57.1532 kg

DRUGS (2)
  1. BEXTRA [Suspect]
     Indication: OSTEOARTHRITIS
     Dosage: ORAL
     Route: 048
     Dates: start: 20040101, end: 20040701
  2. ESTROGENS (ESTROGENS) [Concomitant]

REACTIONS (3)
  - BREAST CANCER FEMALE [None]
  - CONSTIPATION [None]
  - DRUG EFFECT DECREASED [None]
